FAERS Safety Report 19986478 (Version 4)
Quarter: 2021Q4

REPORT INFORMATION
  Report Type: Spontaneous
  Country: US (occurrence: US)
  Receive Date: 20211022
  Receipt Date: 20211119
  Transmission Date: 20220303
  Serious: Yes (Hospitalization, Other)
  Sender: FDA-Public Use
  Company Number: US-PFIZER INC-202101367917

PATIENT
  Age: 68 Year
  Sex: Female

DRUGS (3)
  1. ZARONTIN [Suspect]
     Active Substance: ETHOSUXIMIDE
     Dosage: UNK
     Dates: end: 2016
  2. PRIMIDONE [Concomitant]
     Active Substance: PRIMIDONE
     Dosage: UNK
  3. PHENOBARBITAL [Concomitant]
     Active Substance: PHENOBARBITAL
     Dosage: UNK
     Dates: start: 1967

REACTIONS (2)
  - Generalised tonic-clonic seizure [Recovering/Resolving]
  - Drug ineffective [Unknown]
